FAERS Safety Report 4933285-3 (Version None)
Quarter: 2006Q1

REPORT INFORMATION
  Report Type: 
  Country: None (occurrence: None)
  Receive Date: 20060306
  Receipt Date: 20051110
  Transmission Date: 20060701
  Serious: Yes (Hospitalization)
  Sender: FDA-Public Use
  Company Number: US-MERCK-0511USA01960

PATIENT
  Age: 78 Year
  Sex: Male
  Weight: 80 kg

DRUGS (11)
  1. VIOXX [Suspect]
     Indication: INFLAMMATION
     Route: 048
     Dates: start: 19990701, end: 20040701
  2. LESCOL [Concomitant]
     Route: 065
  3. AMARYL [Concomitant]
     Route: 065
  4. PRILOSEC [Concomitant]
     Route: 048
  5. GLUCOPHAGE [Concomitant]
     Route: 065
  6. VITAMIN E [Concomitant]
     Route: 065
  7. ACTOS [Concomitant]
     Route: 065
  8. FUROSEMIDE [Concomitant]
     Route: 065
  9. ZITHROMAX [Concomitant]
     Route: 065
  10. PLAVIX [Concomitant]
     Route: 065
  11. TIMOLOL [Concomitant]
     Route: 047

REACTIONS (4)
  - CHOLELITHIASIS [None]
  - LACUNAR INFARCTION [None]
  - LIVER FUNCTION TEST ABNORMAL [None]
  - TRANSIENT ISCHAEMIC ATTACK [None]
